FAERS Safety Report 6179683-4 (Version None)
Quarter: 2009Q2

REPORT INFORMATION
  Report Type: 
  Country: None (occurrence: None)
  Receive Date: 20090505
  Receipt Date: 20090430
  Transmission Date: 20091009
  Serious: Yes (Life-Threatening)
  Sender: FDA-Public Use
  Company Number: PHEH2009US04287

PATIENT
  Sex: Female

DRUGS (2)
  1. FEMARA [Suspect]
     Dosage: 10 PILLS
     Route: 048
  2. DIOVAN [Suspect]

REACTIONS (3)
  - ABASIA [None]
  - BONE PAIN [None]
  - MALAISE [None]
